FAERS Safety Report 7319668-5 (Version None)
Quarter: 2011Q1

REPORT INFORMATION
  Report Type: 
  Country: None (occurrence: None)
  Receive Date: 20110228
  Receipt Date: 20100706
  Transmission Date: 20110831
  Serious: No
  Sender: FDA-Public Use
  Company Number: A0870270A

PATIENT
  Age: 25 Year
  Sex: Female

DRUGS (1)
  1. LAMICTAL [Suspect]
     Dosage: 150MG UNKNOWN
     Route: 048

REACTIONS (1)
  - NASOPHARYNGITIS [None]
